FAERS Safety Report 7898874-5 (Version None)
Quarter: 2011Q4

REPORT INFORMATION
  Report Type: 
  Country: None (occurrence: None)
  Receive Date: 20111107
  Receipt Date: 20111103
  Transmission Date: 20120403
  Serious: Yes (Other)
  Sender: FDA-Public Use
  Company Number: US-PFIZER INC-2011270419

PATIENT

DRUGS (3)
  1. CHANTIX [Suspect]
     Dosage: UNK
  2. TAPENTADOL [Suspect]
     Dosage: UNK
  3. CYMBALTA [Suspect]
     Dosage: 60 MG, UNK

REACTIONS (2)
  - SUBDURAL HAEMATOMA [None]
  - CONVULSION [None]
